FAERS Safety Report 9665633 (Version 2)
Quarter: 2014Q1

REPORT INFORMATION
  Report Type: Report from Study
  Country: JP (occurrence: JP)
  Receive Date: 20131104
  Receipt Date: 20140317
  Transmission Date: 20141002
  Serious: Yes (Other)
  Sender: FDA-Public Use
  Company Number: JP-VERTEX PHARMACEUTICALS INC-2013-010796

PATIENT
  Age: 48 Year
  Sex: Male

DRUGS (7)
  1. VX-950 (TELAPREVIR) [Suspect]
     Indication: CHRONIC HEPATITIS C
     Dosage: 2250 MG, QD
     Route: 048
     Dates: start: 20120914, end: 20121207
  2. PEGINTERFERON ALFA-2B [Suspect]
     Indication: CHRONIC HEPATITIS C
     Dosage: 1.5 ?G/KG, QW
     Route: 058
     Dates: start: 20120914, end: 20130222
  3. RIBAVIRIN [Suspect]
     Indication: CHRONIC HEPATITIS C
     Dosage: 800 MG, QD
     Route: 048
     Dates: start: 20120914, end: 20130222
  4. CELESTAMINE [Concomitant]
     Dosage: 3 DF, QD
     Route: 048
     Dates: start: 20120914
  5. GASMOTIN [Concomitant]
     Dosage: 15 MG, QD
     Route: 048
     Dates: start: 20120914
  6. ALLOZYM [Concomitant]
     Dosage: 200 MG, QD
     Route: 048
     Dates: start: 20120914, end: 20121208
  7. FLUVASTATIN [Concomitant]
     Dosage: 20 MG, QD
     Route: 048
     Dates: start: 20120914, end: 20120927

REACTIONS (2)
  - Neutrophil count decreased [Recovering/Resolving]
  - Neutrophil count decreased [Recovered/Resolved]
